FAERS Safety Report 22620396 (Version 1)
Quarter: 2023Q2

REPORT INFORMATION
  Report Type: Spontaneous
  Country: CN (occurrence: CN)
  Receive Date: 20230620
  Receipt Date: 20230620
  Transmission Date: 20230721
  Serious: Yes (Hospitalization, Other)
  Sender: FDA-Public Use
  Company Number: CN-TAKEDA-2023TUS058815

PATIENT
  Age: 37 Year
  Sex: Male
  Weight: 75 kg

DRUGS (1)
  1. ALBUMIN HUMAN [Suspect]
     Active Substance: ALBUMIN HUMAN
     Indication: Product used for unknown indication
     Dosage: 30 GRAM, QD
     Route: 041
     Dates: start: 20230605, end: 20230605

REACTIONS (7)
  - Coma [Recovering/Resolving]
  - Cerebral haemorrhage [Recovering/Resolving]
  - Pneumonitis [Recovering/Resolving]
  - Pericardial effusion [Recovering/Resolving]
  - Headache [Recovering/Resolving]
  - Hypoproteinaemia [Recovering/Resolving]
  - Rash pruritic [Recovering/Resolving]

NARRATIVE: CASE EVENT DATE: 20230605
